FAERS Safety Report 5588957-7 (Version None)
Quarter: 2007Q4

REPORT INFORMATION
  Report Type: 
  Country: None (occurrence: None)
  Receive Date: 20071211
  Receipt Date: 20071107
  Transmission Date: 20080405
  Serious: No
  Sender: FDA-Public Use
  Company Number: 002#2#2007-00316

PATIENT
  Sex: Male

DRUGS (1)
  1. NEUPRO [Suspect]

REACTIONS (3)
  - FACIAL PALSY [None]
  - GAIT DISTURBANCE [None]
  - MUSCLE TIGHTNESS [None]
